FAERS Safety Report 6547638-3 (Version None)
Quarter: 2010Q1

REPORT INFORMATION
  Report Type: 
  Country: None (occurrence: None)
  Receive Date: 20100122
  Receipt Date: 20100119
  Transmission Date: 20100710
  Serious: Yes (Death)
  Sender: FDA-Public Use
  Company Number: US-GILEAD-2010-0026547

PATIENT
  Sex: Male
  Weight: 61.29 kg

DRUGS (10)
  1. LETAIRIS [Suspect]
     Indication: PULMONARY ARTERIAL HYPERTENSION
     Route: 048
     Dates: start: 20080701, end: 20100102
  2. COUMADIN [Concomitant]
  3. PROTONIX [Concomitant]
  4. NORVASC [Concomitant]
  5. MEVACOR [Concomitant]
  6. COZAAR [Concomitant]
  7. TENORMIN [Concomitant]
  8. PLENDIL [Concomitant]
  9. PRILOSEC [Concomitant]
  10. SENSIPAR [Concomitant]

REACTIONS (1)
  - DEATH [None]
